FAERS Safety Report 10701512 (Version 1)
Quarter: 2015Q1

REPORT INFORMATION
  Report Type: Spontaneous
  Country: IT (occurrence: IT)
  Receive Date: 20150109
  Receipt Date: 20150109
  Transmission Date: 20150721
  Serious: Yes (Other)
  Sender: FDA-Public Use
  Company Number: ALCN2015IT000460

PATIENT
  Age: 43 Year
  Sex: Female

DRUGS (4)
  1. TOBRADEX [Suspect]
     Active Substance: DEXAMETHASONE\TOBRAMYCIN
     Dosage: 1 DF, BID
     Route: 047
  2. TOBRADEX [Suspect]
     Active Substance: DEXAMETHASONE\TOBRAMYCIN
     Indication: CONJUNCTIVAL ABRASION
     Dosage: 1 DF, 6QD
     Route: 047
     Dates: start: 20141210, end: 20151219
  3. TOBRADEX [Suspect]
     Active Substance: DEXAMETHASONE\TOBRAMYCIN
     Dosage: 1 DF, QID
     Route: 047
  4. TOBRADEX [Suspect]
     Active Substance: DEXAMETHASONE\TOBRAMYCIN
     Indication: CONJUNCTIVAL ABRASION
     Dosage: 1 DF, QD (AT NIGHT)
     Route: 047
     Dates: start: 20141210, end: 20141219

REACTIONS (2)
  - Corneal lesion [Unknown]
  - Alopecia [Unknown]

NARRATIVE: CASE EVENT DATE: 20141220
